FAERS Safety Report 6223482-1 (Version None)
Quarter: 2009Q2

REPORT INFORMATION
  Report Type: 
  Country: None (occurrence: None)
  Receive Date: 20090609
  Receipt Date: 20090603
  Transmission Date: 20091009
  Serious: Yes (Death, Other)
  Sender: FDA-Public Use
  Company Number: US-WYE-H09264109

PATIENT
  Age: 53 Year
  Sex: Female

DRUGS (3)
  1. PREMPRO [Suspect]
  2. PREMARIN [Suspect]
  3. PROVERA [Suspect]

REACTIONS (8)
  - BREAST CANCER METASTATIC [None]
  - BREAST CANCER STAGE III [None]
  - CARDIAC ARREST [None]
  - HYPOXIA [None]
  - METASTASES TO BONE [None]
  - METASTASES TO LUNG [None]
  - METASTASES TO LYMPH NODES [None]
  - PLEURAL EFFUSION [None]
